FAERS Safety Report 8909166 (Version 1)
Quarter: 2012Q4

REPORT INFORMATION
  Report Type: Spontaneous
  Country: IN (occurrence: None)
  Receive Date: 20121107
  Receipt Date: 20121107
  Transmission Date: 20130627
  Serious: Yes (Other)
  Sender: FDA-Public Use
  Company Number: 2012P1061318

PATIENT
  Sex: Female

DRUGS (2)
  1. ISONIAZID [Suspect]
     Indication: INVESTIGATION
     Route: 048
  2. ETHAMBUTOL [Suspect]
     Route: 048

REACTIONS (6)
  - Pruritus generalised [None]
  - Erythema [None]
  - Swelling face [None]
  - Eye irritation [None]
  - Pyrexia [None]
  - Skin exfoliation [None]
